FAERS Safety Report 6852642-1 (Version None)
Quarter: 2010Q3

REPORT INFORMATION
  Report Type: 
  Country: None (occurrence: None)
  Receive Date: 20100717
  Receipt Date: 20080209
  Transmission Date: 20110219
  Serious: No
  Sender: FDA-Public Use
  Company Number: US-PFIZER INC-2007096836

PATIENT
  Sex: Female
  Weight: 55.454 kg

DRUGS (2)
  1. CHANTIX [Suspect]
     Indication: SMOKING CESSATION THERAPY
     Dates: start: 20071105
  2. ZITHROMAX [Concomitant]
     Indication: SINUSITIS

REACTIONS (8)
  - COGNITIVE DISORDER [None]
  - DIZZINESS [None]
  - FEELING ABNORMAL [None]
  - FEELING JITTERY [None]
  - NAUSEA [None]
  - PALPITATIONS [None]
  - TREMOR [None]
  - WEIGHT INCREASED [None]
